FAERS Safety Report 8585990-8 (Version None)
Quarter: 2012Q3

REPORT INFORMATION
  Report Type: 
  Country: None (occurrence: None)
  Receive Date: 20120810
  Receipt Date: 20120807
  Transmission Date: 20120928
  Serious: No
  Sender: FDA-Public Use
  Company Number: US-BAYER-2012-081215

PATIENT
  Sex: Female

DRUGS (3)
  1. MAGNESIUM [Concomitant]
     Indication: MUSCLE SPASMS
  2. COENZYME Q10 [Concomitant]
     Indication: MUSCLE SPASMS
  3. BETASERON [Suspect]
     Indication: MULTIPLE SCLEROSIS
     Dosage: 0.3 MG, UNK
     Route: 058
     Dates: start: 20100120

REACTIONS (2)
  - MUSCLE SPASMS [None]
  - GAIT DISTURBANCE [None]
